FAERS Safety Report 16647223 (Version 2)
Quarter: 2019Q4

REPORT INFORMATION
  Report Type: Other
  Country: CA (occurrence: CA)
  Receive Date: 20190730
  Receipt Date: 20191205
  Transmission Date: 20200122
  Serious: Yes (Other)
  Sender: FDA-Public Use
  Company Number: CA-ASTELLAS-2019US030680

PATIENT

DRUGS (7)
  1. MYCOPHENOLIC ACID. [Suspect]
     Active Substance: MYCOPHENOLIC ACID
     Indication: CHRONIC GRAFT VERSUS HOST DISEASE IN SKIN
     Dosage: UNK UNK, UNKNOWN FREQ.
     Route: 065
  2. IMATINIB. [Suspect]
     Active Substance: IMATINIB MESYLATE
     Indication: CHRONIC GRAFT VERSUS HOST DISEASE IN SKIN
     Dosage: UNK UNK, UNKNOWN FREQ.
     Route: 065
  3. TACROLIMUS. [Suspect]
     Active Substance: TACROLIMUS
     Indication: CHRONIC GRAFT VERSUS HOST DISEASE IN SKIN
     Dosage: UNK UNK, UNKNOWN FREQ.
     Route: 065
  4. RITUXIMAB. [Suspect]
     Active Substance: RITUXIMAB
     Indication: CHRONIC GRAFT VERSUS HOST DISEASE IN SKIN
     Dosage: UNK UNK, UNKNOWN FREQ.
     Route: 041
  5. RITUXIMAB. [Suspect]
     Active Substance: RITUXIMAB
     Dosage: UNK UNK, UNKNOWN FREQ.
     Route: 041
  6. PREDNISONE. [Suspect]
     Active Substance: PREDNISONE
     Indication: CHRONIC GRAFT VERSUS HOST DISEASE IN SKIN
     Dosage: UNK UNK, UNKNOWN FREQ.
     Route: 065
  7. CICLOSPORIN [Suspect]
     Active Substance: CYCLOSPORINE
     Indication: CHRONIC GRAFT VERSUS HOST DISEASE IN SKIN
     Dosage: UNK, UNKNOWN FREQ.
     Route: 065

REACTIONS (3)
  - Chronic graft versus host disease in skin [Unknown]
  - Toxicity to various agents [Unknown]
  - Product use in unapproved indication [Unknown]
